FAERS Safety Report 6900213-0 (Version None)
Quarter: 2010Q3

REPORT INFORMATION
  Report Type: 
  Country: None (occurrence: None)
  Receive Date: 20100803
  Receipt Date: 20100726
  Transmission Date: 20110219
  Serious: Yes (Hospitalization, Other)
  Sender: FDA-Public Use
  Company Number: BE-AMGEN-QUU427447

PATIENT
  Sex: Male

DRUGS (2)
  1. ARANESP [Suspect]
     Indication: DIALYSIS
  2. EPREX [Concomitant]

REACTIONS (3)
  - ANAEMIA [None]
  - DERMATITIS EXFOLIATIVE [None]
  - DRUG RESISTANCE [None]
